FAERS Safety Report 26055599 (Version 1)
Quarter: 2025Q4

REPORT INFORMATION
  Report Type: Spontaneous
  Country: CA (occurrence: CA)
  Receive Date: 20251117
  Receipt Date: 20251117
  Transmission Date: 20260117
  Serious: Yes (Hospitalization, Other)
  Sender: INTERCEPT PHARMACEUTICALS
  Company Number: CA-ADVANZ PHARMA-202210007034

PATIENT
  Age: 50 Year
  Sex: Female

DRUGS (7)
  1. OCALIVA [Suspect]
     Active Substance: OBETICHOLIC ACID
     Indication: Primary biliary cholangitis
     Dosage: 5 MG, QD (OCALIVA)
     Dates: start: 20220821
  2. URSODIOL [Concomitant]
     Active Substance: URSODIOL
     Indication: Primary biliary cholangitis
     Dosage: 1000 MG
  3. URSODIOL [Concomitant]
     Active Substance: URSODIOL
     Dosage: 1000 MG
  4. LEVOTHYROXINE [Concomitant]
     Active Substance: LEVOTHYROXINE
     Indication: Hypothyroidism
     Dosage: UNK (MG)
  5. LEVOTHYROXINE [Concomitant]
     Active Substance: LEVOTHYROXINE
     Dosage: UNK (MG)
  6. NADOLOL [Concomitant]
     Active Substance: NADOLOL
     Indication: Portal hypertension
     Dosage: UNK (MG)
  7. NADOLOL [Concomitant]
     Active Substance: NADOLOL
     Indication: Hypertension

REACTIONS (13)
  - Haematemesis [Unknown]
  - Haemorrhage [Unknown]
  - Abdominal pain upper [Unknown]
  - Tooth loss [Unknown]
  - Pain [Not Recovered/Not Resolved]
  - Nasopharyngitis [Unknown]
  - Abdominal distension [Recovered/Resolved]
  - Cough [Unknown]
  - Fatigue [Unknown]
  - Hepatic pain [Not Recovered/Not Resolved]
  - Product dose omission issue [Unknown]
  - Product use issue [Unknown]
  - Therapy interrupted [Unknown]

NARRATIVE: CASE EVENT DATE: 20230716
